FAERS Safety Report 4589279-3 (Version None)
Quarter: 2005Q1

REPORT INFORMATION
  Report Type: 
  Country: None (occurrence: None)
  Receive Date: 20050223
  Receipt Date: 20050216
  Transmission Date: 20050727
  Serious: Yes (Other)
  Sender: FDA-Public Use
  Company Number: BE-ABBOTT-05P-013-0291073-00

PATIENT
  Sex: Female

DRUGS (1)
  1. HUMIRA [Suspect]
     Indication: RHEUMATOID ARTHRITIS
     Route: 058
     Dates: start: 20040816, end: 20040830

REACTIONS (8)
  - CONSTIPATION [None]
  - EXANTHEM [None]
  - HEADACHE [None]
  - LOCAL REACTION [None]
  - PHARYNGEAL ERYTHEMA [None]
  - PRURITUS [None]
  - PYREXIA [None]
  - VOMITING [None]
